FAERS Safety Report 14695386 (Version 3)
Quarter: 2018Q3

REPORT INFORMATION
  Report Type: Spontaneous
  Country: US (occurrence: US)
  Receive Date: 20180329
  Receipt Date: 20180704
  Transmission Date: 20181010
  Serious: Yes (Life-Threatening, Other)
  Sender: FDA-Public Use
  Company Number: US-VIFOR (INTERNATIONAL) INC.-VIT-2018-03075

PATIENT
  Age: 38 Year
  Sex: Female
  Weight: 127 kg

DRUGS (5)
  1. TORASEMIDE [Concomitant]
     Active Substance: TORSEMIDE
     Dosage: 1 TABLET 3 TIMES A DAY
     Route: 048
     Dates: start: 20180302
  2. MIRCERA [Suspect]
     Active Substance: METHOXY POLYETHYLENE GLYCOL-EPOETIN BETA
     Indication: NEPHROGENIC ANAEMIA
     Dosage: AT APPROXIMATELY 19:14 HOURS
     Route: 040
     Dates: start: 20180316, end: 20180316
  3. VENOFER [Suspect]
     Active Substance: IRON SUCROSE
     Indication: NEPHROGENIC ANAEMIA
     Dosage: AT APPROXIMATELY 16:45 HOURS
     Route: 040
     Dates: start: 20180316
  4. CARVEDILOL. [Concomitant]
     Active Substance: CARVEDILOL
     Dosage: 1 TABLET ONCE DAILY
     Route: 048
     Dates: start: 20180302
  5. AMLODIPINE [Concomitant]
     Active Substance: AMLODIPINE BESYLATE
     Dosage: 1 TABLET ONCE DAILY
     Route: 048
     Dates: start: 20180302

REACTIONS (15)
  - Back pain [Recovered/Resolved]
  - Hypertension [Recovered/Resolved]
  - Vomiting [Recovered/Resolved]
  - Anxiety [Recovered/Resolved]
  - Cyanosis [Recovered/Resolved]
  - Malaise [Recovering/Resolving]
  - Respiratory distress [Recovered/Resolved]
  - Lethargy [Recovered/Resolved]
  - Drug hypersensitivity [Recovering/Resolving]
  - Angioedema [Recovered/Resolved]
  - Nausea [Recovered/Resolved]
  - Loss of consciousness [Recovered/Resolved]
  - Dyspnoea [Recovered/Resolved]
  - Flushing [Recovered/Resolved]
  - Depressed level of consciousness [Recovered/Resolved]

NARRATIVE: CASE EVENT DATE: 20180316
